FAERS Safety Report 8583180-6 (Version None)
Quarter: 2012Q3

REPORT INFORMATION
  Report Type: 
  Country: None (occurrence: None)
  Receive Date: 20120809
  Receipt Date: 20120802
  Transmission Date: 20120928
  Serious: Yes (Hospitalization)
  Sender: FDA-Public Use
  Company Number: KR-UCBSA-063071

PATIENT
  Age: 46 Year
  Sex: Male

DRUGS (8)
  1. ZOBIRAX [Concomitant]
     Indication: ENCEPHALITIS
  2. DESAMETHASONE [Concomitant]
     Indication: ENCEPHALITIS
  3. ZOBIRAX [Concomitant]
  4. TOPAMAX [Suspect]
     Dosage: 50 MG
     Dates: start: 20120101, end: 20120101
  5. DESAMETHASONE [Concomitant]
     Indication: ENCEPHALITIS HERPES
  6. KEPPRA [Suspect]
     Dosage: UNKNOWN DOSE
     Dates: start: 20120101
  7. DEPAKENE [Suspect]
     Dosage: 1000 MG
     Dates: start: 20120101
  8. OXCARBAZEPINE [Suspect]
     Dates: start: 20120412

REACTIONS (6)
  - COGNITIVE DISORDER [None]
  - MEMORY IMPAIRMENT [None]
  - SOMNOLENCE [None]
  - ABNORMAL BEHAVIOUR [None]
  - CONFUSIONAL STATE [None]
  - DISORIENTATION [None]
